FAERS Safety Report 14415939 (Version 1)
Quarter: 2018Q1

REPORT INFORMATION
  Report Type: Report from Study
  Country: PE (occurrence: PE)
  Receive Date: 20180122
  Receipt Date: 20180122
  Transmission Date: 20180509
  Serious: Yes (Disabling, Other)
  Sender: FDA-Public Use
  Company Number: PE-ROCHE-2054704

PATIENT
  Sex: Female

DRUGS (1)
  1. HERCEPTIN [Suspect]
     Active Substance: TRASTUZUMAB
     Indication: BREAST CANCER
     Dosage: LAST DOSE: 29/NOV/2017.
     Route: 042
     Dates: start: 20170706

REACTIONS (13)
  - Constipation [Recovering/Resolving]
  - Myalgia [Recovering/Resolving]
  - Immune system disorder [Recovering/Resolving]
  - Parosmia [Recovering/Resolving]
  - Hypoaesthesia [Recovering/Resolving]
  - Dysgeusia [Recovering/Resolving]
  - Nervousness [Recovering/Resolving]
  - Neuropathy peripheral [Recovering/Resolving]
  - Gastrointestinal disorder [Recovering/Resolving]
  - Asthenia [Recovering/Resolving]
  - Motor dysfunction [Recovering/Resolving]
  - Gastritis [Recovering/Resolving]
  - Hypersensitivity [Recovering/Resolving]
